FAERS Safety Report 10574203 (Version 1)
Quarter: 2014Q4

REPORT INFORMATION
  Report Type: Spontaneous
  Country: US (occurrence: US)
  Receive Date: 20141110
  Receipt Date: 20141110
  Transmission Date: 20150529
  Serious: No
  Sender: FDA-Public Use
  Company Number: US-GALDERMA-US14003024

PATIENT
  Age: 56 Year
  Sex: Female

DRUGS (5)
  1. CLOBEX [Suspect]
     Active Substance: CLOBETASOL PROPIONATE
     Indication: PSORIASIS
     Dosage: 0.05%
     Route: 061
     Dates: start: 2010
  2. TOPROL-XL (METOPROLOL) [Concomitant]
     Indication: HYPERTENSION
     Route: 048
  3. PAIN MEDICATION [Concomitant]
     Active Substance: UNSPECIFIED INGREDIENT
     Indication: PAIN MANAGEMENT
  4. PREDNISONE. [Concomitant]
     Active Substance: PREDNISONE
     Indication: PSORIASIS
     Route: 048
  5. VECTICAL [Concomitant]
     Active Substance: CALCITRIOL
     Indication: PSORIASIS
     Dosage: 3 MCG
     Route: 061
     Dates: start: 2010

REACTIONS (3)
  - Nausea [Recovering/Resolving]
  - Accidental exposure to product [Recovered/Resolved]
  - Vomiting [Recovered/Resolved]

NARRATIVE: CASE EVENT DATE: 20140812
